FAERS Safety Report 14210038 (Version 1)
Quarter: 2017Q4

REPORT INFORMATION
  Report Type: Spontaneous
  Country: US (occurrence: US)
  Receive Date: 20171121
  Receipt Date: 20171121
  Transmission Date: 20180321
  Serious: Yes (Hospitalization)
  Sender: FDA-Public Use
  Company Number: US-JNJFOC-20171016780

PATIENT
  Age: 74 Year
  Sex: Male

DRUGS (6)
  1. XARELTO [Suspect]
     Active Substance: RIVAROXABAN
     Indication: CEREBROVASCULAR ACCIDENT PROPHYLAXIS
     Dosage: AT VARYING DOSES OF 15 MG AND 20 MG
     Route: 048
     Dates: end: 20150919
  2. XARELTO [Suspect]
     Active Substance: RIVAROXABAN
     Indication: ATRIAL FIBRILLATION
     Dosage: AT VARYING DOSES OF 15 MG AND 20 MG
     Route: 048
     Dates: end: 20150919
  3. XARELTO [Suspect]
     Active Substance: RIVAROXABAN
     Indication: THROMBOSIS PROPHYLAXIS
     Dosage: AT VARYING DOSES OF 15 MG AND 20 MG
     Route: 048
     Dates: end: 20150919
  4. XARELTO [Suspect]
     Active Substance: RIVAROXABAN
     Indication: CEREBROVASCULAR ACCIDENT PROPHYLAXIS
     Dosage: AT VARYING DOSES OF 15 MG AND 20 MG
     Route: 048
     Dates: start: 201401, end: 201501
  5. XARELTO [Suspect]
     Active Substance: RIVAROXABAN
     Indication: ATRIAL FIBRILLATION
     Dosage: AT VARYING DOSES OF 15 MG AND 20 MG
     Route: 048
     Dates: start: 201401, end: 201501
  6. XARELTO [Suspect]
     Active Substance: RIVAROXABAN
     Indication: THROMBOSIS PROPHYLAXIS
     Dosage: AT VARYING DOSES OF 15 MG AND 20 MG
     Route: 048
     Dates: start: 201401, end: 201501

REACTIONS (2)
  - Post procedural haemorrhage [Recovered/Resolved]
  - Epistaxis [Recovered/Resolved]

NARRATIVE: CASE EVENT DATE: 201501
